FAERS Safety Report 10521643 (Version 1)
Quarter: 2014Q4

REPORT INFORMATION
  Report Type: Spontaneous
  Country: US (occurrence: None)
  Receive Date: 20141014
  Receipt Date: 20141014
  Transmission Date: 20150528
  Serious: Yes (Other)
  Sender: FDA-Public Use
  Company Number: COL_18096_2014

PATIENT
  Age: 25 Year
  Sex: Male

DRUGS (1)
  1. SPEED STICK POWER FRESH [Suspect]
     Active Substance: ALUMINUM ZIRCONIUM TETRACHLOROHYDREX GLY
     Indication: PRODUCT USED FOR UNKNOWN INDICATION
     Dosage: 3 SWIPES UNDER EACH ARM/TWICE A DAY/ TOPICAL
     Dates: start: 20140916, end: 20140917

REACTIONS (7)
  - Application site vesicles [None]
  - Burns second degree [None]
  - Wound secretion [None]
  - Rash [None]
  - Skin exfoliation [None]
  - Hypersensitivity [None]
  - Product quality issue [None]

NARRATIVE: CASE EVENT DATE: 20140916
